FAERS Safety Report 26069283 (Version 2)
Quarter: 2025Q4

REPORT INFORMATION
  Report Type: Report from Study
  Country: AR (occurrence: AR)
  Receive Date: 20251120
  Receipt Date: 20251203
  Transmission Date: 20260117
  Serious: Yes (Hospitalization, Other)
  Sender: JOHNSON AND JOHNSON
  Company Number: AR-JNJFOC-20251164684

PATIENT
  Age: 49 Year
  Sex: Female
  Weight: 77 kg

DRUGS (3)
  1. SIMPONI [Suspect]
     Active Substance: GOLIMUMAB
     Indication: Rheumatoid arthritis
     Route: 058
     Dates: start: 20200714
  2. SIMPONI [Suspect]
     Active Substance: GOLIMUMAB
  3. SIMPONI [Suspect]
     Active Substance: GOLIMUMAB

REACTIONS (7)
  - Herpes simplex [Unknown]
  - Facial paralysis [Unknown]
  - Decreased immune responsiveness [Unknown]
  - Headache [Unknown]
  - Ear pain [Unknown]
  - Oropharyngeal pain [Unknown]
  - Toothache [Unknown]

NARRATIVE: CASE EVENT DATE: 20251102
